FAERS Safety Report 9949006 (Version 2)
Quarter: 2014Q1

REPORT INFORMATION
  Report Type: Spontaneous
  Country: ES (occurrence: ES)
  Receive Date: 20140304
  Receipt Date: 20140310
  Transmission Date: 20141002
  Serious: Yes (Other)
  Sender: FDA-Public Use
  Company Number: ES-AMGEN-ESPSP2014013979

PATIENT
  Age: 79 Year
  Sex: Male

DRUGS (2)
  1. NPLATE [Suspect]
     Indication: PRODUCT USED FOR UNKNOWN INDICATION
     Dosage: 7 MG/KG, UNK
     Route: 065
     Dates: start: 20130327, end: 20140214
  2. ELTROMBOPAG [Concomitant]
     Dosage: 75 MG, UNK
     Dates: start: 201311

REACTIONS (3)
  - Chronic lymphocytic leukaemia [Unknown]
  - Platelet disorder [Unknown]
  - Drug effect incomplete [Unknown]
